FAERS Safety Report 7013036-1 (Version None)
Quarter: 2010Q3

REPORT INFORMATION
  Report Type: 
  Country: None (occurrence: None)
  Receive Date: 20100924
  Receipt Date: 20100917
  Transmission Date: 20110219
  Serious: Yes (Other)
  Sender: FDA-Public Use
  Company Number: GB-PFIZER INC-2010117792

PATIENT
  Age: 71 Year
  Sex: Female

DRUGS (10)
  1. LIPITOR [Suspect]
     Dosage: 80 MG, UNK
  2. SALBUTAMOL [Concomitant]
     Dosage: UNK
  3. SALMETEROL [Concomitant]
     Dosage: UNK
  4. BECLOMETASONE [Concomitant]
     Dosage: UNK
  5. MUCODYNE [Concomitant]
     Dosage: UNK
  6. IKOREL [Concomitant]
     Dosage: UNK
  7. AXID [Concomitant]
     Dosage: UNK
  8. DILTIAZEM HCL [Concomitant]
     Dosage: UNK
  9. DIOVAN HCT [Concomitant]
     Dosage: UNK
  10. CLOPIDOGREL [Concomitant]
     Dosage: UNK

REACTIONS (1)
  - DYSPNOEA [None]
